FAERS Safety Report 17959457 (Version 1)
Quarter: 2020Q2

REPORT INFORMATION
  Report Type: Spontaneous
  Country: DE (occurrence: DE)
  Receive Date: 20200630
  Receipt Date: 20200630
  Transmission Date: 20200714
  Serious: No
  Sender: FDA-Public Use
  Company Number: DE-LUPIN PHARMACEUTICALS INC.-2020-02558

PATIENT
  Sex: Female

DRUGS (1)
  1. OXYCAN UNO RETARDTABLETTEN [Suspect]
     Active Substance: OXYCODONE
     Indication: PAIN
     Dosage: 1 DOSAGE FORM, QD (EVERY MORNING)
     Route: 048

REACTIONS (3)
  - Product blister packaging issue [Unknown]
  - No adverse event [Unknown]
  - Poor quality product administered [Unknown]
